FAERS Safety Report 5932754-7 (Version None)
Quarter: 2008Q4

REPORT INFORMATION
  Report Type: 
  Country: None (occurrence: None)
  Receive Date: 20081027
  Receipt Date: 20081027
  Transmission Date: 20090506
  Serious: Yes (Hospitalization)
  Sender: FDA-Public Use
  Company Number: None

PATIENT
  Sex: Male
  Weight: 100.2 kg

DRUGS (7)
  1. CARBOPLATIN [Suspect]
     Dosage: 500 MG
  2. ETOPOSIDE [Suspect]
     Dosage: 214 MG
  3. IFOSFAMIDE [Suspect]
     Dosage: 10700 MG
  4. MESNA [Suspect]
     Dosage: 10700 MG
  5. RITUXIMAB (MOAB C2B8 ANTI CD20 CHIMERIC) [Suspect]
     Dosage: 800 MG
  6. METFORMIN HCL [Concomitant]
  7. GLIMERPIRIDE [Concomitant]

REACTIONS (6)
  - FATIGUE [None]
  - FEELING ABNORMAL [None]
  - HYPOGLYCAEMIA [None]
  - HYPOPHAGIA [None]
  - LOSS OF CONSCIOUSNESS [None]
  - MINI MENTAL STATUS EXAMINATION ABNORMAL [None]
